FAERS Safety Report 11003882 (Version 1)
Quarter: 2015Q2

REPORT INFORMATION
  Report Type: Spontaneous
  Country: US (occurrence: None)
  Receive Date: 20150408
  Receipt Date: 20150408
  Transmission Date: 20150821
  Serious: Yes (Other)
  Sender: FDA-Public Use
  Company Number: None

PATIENT
  Age: 19 Year
  Sex: Female
  Weight: 70.76 kg

DRUGS (2)
  1. VYVANSE [Suspect]
     Active Substance: LISDEXAMFETAMINE DIMESYLATE
     Indication: ATTENTION DEFICIT/HYPERACTIVITY DISORDER
     Dosage: 1 PILL
     Route: 048
     Dates: start: 20140721, end: 20150407
  2. JOLIVETTE [Concomitant]
     Active Substance: NORETHINDRONE

REACTIONS (6)
  - Anxiety [None]
  - Anger [None]
  - Peripheral coldness [None]
  - Negative thoughts [None]
  - Hypoaesthesia [None]
  - Depression [None]

NARRATIVE: CASE EVENT DATE: 20150407
